FAERS Safety Report 12892486 (Version 1)
Quarter: 2016Q4

REPORT INFORMATION
  Report Type: Spontaneous
  Country: US (occurrence: US)
  Receive Date: 20161028
  Receipt Date: 20161028
  Transmission Date: 20170207
  Serious: No
  Sender: FDA-Public Use
  Company Number: US-TEVA-698951ACC

PATIENT
  Sex: Female
  Weight: 62.2 kg

DRUGS (2)
  1. AFTERA [Suspect]
     Active Substance: LEVONORGESTREL
     Indication: POST COITAL CONTRACEPTION
     Dates: start: 20160923, end: 20160923
  2. LOW OGESTREL ORAL CONTRACEPTIVE PILLS [Concomitant]
     Indication: POST COITAL CONTRACEPTION

REACTIONS (3)
  - Uterine pain [Not Recovered/Not Resolved]
  - Headache [Not Recovered/Not Resolved]
  - Breast tenderness [Recovered/Resolved]
